FAERS Safety Report 7229997-1 (Version None)
Quarter: 2011Q1

REPORT INFORMATION
  Report Type: 
  Country: None (occurrence: None)
  Receive Date: 20110117
  Receipt Date: 20110112
  Transmission Date: 20110831
  Serious: Yes (Other)
  Sender: FDA-Public Use
  Company Number: US-RB-020502-11

PATIENT
  Age: 48 Year
  Sex: Male

DRUGS (1)
  1. SUBOXONE [Suspect]
     Indication: PRODUCT USED FOR UNKNOWN INDICATION
     Dosage: DOSING INFORMATION UNKNOWN / SUBLINGUAL FILM
     Route: 065

REACTIONS (9)
  - DYSURIA [None]
  - DRY MOUTH [None]
  - VOMITING [None]
  - PARAESTHESIA [None]
  - EUPHORIC MOOD [None]
  - PARANOIA [None]
  - LOSS OF LIBIDO [None]
  - SOMNOLENCE [None]
  - HYPOAESTHESIA ORAL [None]
